FAERS Safety Report 7066603-3 (Version None)
Quarter: 2010Q4

REPORT INFORMATION
  Report Type: 
  Country: None (occurrence: None)
  Receive Date: 20101027
  Receipt Date: 20100802
  Transmission Date: 20110411
  Serious: No
  Sender: FDA-Public Use
  Company Number: US-WYE-H16114910

PATIENT
  Sex: Female
  Weight: 69.92 kg

DRUGS (3)
  1. PREMPRO [Suspect]
     Indication: PRODUCT USED FOR UNKNOWN INDICATION
     Dosage: .625/2.5 MG DAILY
     Route: 048
     Dates: start: 19900101, end: 20100601
  2. PREMPRO [Suspect]
     Dosage: TAPERED OFF TO EVERY OTHER DAY
     Route: 048
     Dates: start: 20100601
  3. OMEPRAZOLE [Concomitant]

REACTIONS (8)
  - ARTHRALGIA [None]
  - ASTHENIA [None]
  - BACK PAIN [None]
  - CONDITION AGGRAVATED [None]
  - FIBROMYALGIA [None]
  - MUSCLE SPASMS [None]
  - POLYMYALGIA RHEUMATICA [None]
  - THYROID DISORDER [None]
